FAERS Safety Report 19482890 (Version 2)
Quarter: 2021Q3

REPORT INFORMATION
  Report Type: Report from Study
  Country: IT (occurrence: IT)
  Receive Date: 20210701
  Receipt Date: 20210715
  Transmission Date: 20211014
  Serious: Yes (Hospitalization)
  Sender: FDA-Public Use
  Company Number: IT-TEVA-2021-IT-1927936

PATIENT
  Age: 24 Year
  Sex: Female

DRUGS (3)
  1. TAVOR 2,5 MG COMPRESSE [Suspect]
     Active Substance: LORAZEPAM
     Route: 048
  2. ARIPIPRAZOLE. [Suspect]
     Active Substance: ARIPIPRAZOLE
     Route: 048
  3. PREGABALIN. [Suspect]
     Active Substance: PREGABALIN
     Dosage: 75 MG
     Route: 048

REACTIONS (1)
  - Sedation complication [Unknown]

NARRATIVE: CASE EVENT DATE: 20210419
